FAERS Safety Report 20030900 (Version 3)
Quarter: 2022Q1

REPORT INFORMATION
  Report Type: Spontaneous
  Country: JP (occurrence: JP)
  Receive Date: 20211103
  Receipt Date: 20220204
  Transmission Date: 20220424
  Serious: Yes (Hospitalization)
  Sender: FDA-Public Use
  Company Number: JP-JNJFOC-20211102945

PATIENT
  Age: 76 Year
  Sex: Female

DRUGS (7)
  1. UPTRAVI [Suspect]
     Active Substance: SELEXIPAG
     Indication: Pulmonary arterial hypertension
     Dosage: (0.2 MG/24 HOURS)
     Route: 048
     Dates: start: 20200120
  2. UPTRAVI [Suspect]
     Active Substance: SELEXIPAG
     Dosage: (0.2 MG/12 HOURS)
     Route: 048
  3. OPSUMIT [Concomitant]
     Active Substance: MACITENTAN
     Indication: Pulmonary arterial hypertension
     Route: 048
     Dates: start: 20180129
  4. FUROSEMIDE [Concomitant]
     Active Substance: FUROSEMIDE
  5. AZOSEMIDE [Concomitant]
     Active Substance: AZOSEMIDE
  6. ELIQUIS [Concomitant]
     Active Substance: APIXABAN
  7. FEBUXOSTAT [Concomitant]
     Active Substance: FEBUXOSTAT

REACTIONS (3)
  - Diarrhoea [Recovered/Resolved]
  - Dehydration [Recovered/Resolved]
  - Dyspnoea [Recovering/Resolving]

NARRATIVE: CASE EVENT DATE: 20200825
